FAERS Safety Report 14023977 (Version 1)
Quarter: 2017Q3

REPORT INFORMATION
  Report Type: Spontaneous
  Country: US (occurrence: None)
  Receive Date: 20170929
  Receipt Date: 20170929
  Transmission Date: 20171128
  Serious: Yes (Death, Other)
  Sender: FDA-Public Use
  Company Number: None

PATIENT
  Age: 12 Year
  Sex: Male
  Weight: 34.1 kg

DRUGS (2)
  1. ATOMOXETINE 25 MG GLENMARK [Suspect]
     Active Substance: ATOMOXETINE
     Indication: PRODUCT USED FOR UNKNOWN INDICATION
     Route: 048
     Dates: start: 20170706
  2. ATOMOXETINE 25 MG GLENMARK [Suspect]
     Active Substance: ATOMOXETINE
     Indication: ATTENTION DEFICIT/HYPERACTIVITY DISORDER
     Route: 048
     Dates: start: 20170706

REACTIONS (2)
  - Therapy non-responder [None]
  - Product substitution issue [None]

NARRATIVE: CASE EVENT DATE: 20170831
